FAERS Safety Report 17535450 (Version 2)
Quarter: 2020Q1

REPORT INFORMATION
  Report Type: Spontaneous
  Country: RU (occurrence: RU)
  Receive Date: 20200312
  Receipt Date: 20200320
  Transmission Date: 20200409
  Serious: Yes (Other)
  Sender: FDA-Public Use
  Company Number: RU-EMD SERONO-9150463

PATIENT
  Age: 59 Year
  Sex: Female

DRUGS (6)
  1. GLUCOPHAGE [Suspect]
     Active Substance: METFORMIN HYDROCHLORIDE
     Indication: TYPE 2 DIABETES MELLITUS
     Dosage: PREVIOUSLY TAKEN
  2. VALERIAN EXTRACT [Concomitant]
     Active Substance: VALERIAN EXTRACT
     Indication: STRESS
     Dosage: SINCE 20 YEARS
     Dates: start: 2000
  3. GLUCOPHAGE [Suspect]
     Active Substance: METFORMIN HYDROCHLORIDE
     Dosage: 2 TABLETS WHOLE AND HALF A TABLET (IN TOTAL 2.5 TABLETS)
     Dates: start: 20200105
  4. NICOTINIC ACID [Concomitant]
     Active Substance: NIACIN
     Indication: SUPPLEMENTATION THERAPY
     Dosage: 5 TABLETS IN THE MORNING AND IN THE EVENING
  5. ACETYLSALICYLIC ACID [Concomitant]
     Active Substance: ASPIRIN
     Indication: VARICOSE VEIN
     Dosage: 20 YEARS AGO
     Dates: start: 2000
  6. SUCCINIC ACID [Concomitant]
     Active Substance: SUCCINIC ACID
     Indication: SUPPLEMENTATION THERAPY
     Dosage: 5 TABLETS IN THE MORNING AND IN THE EVENING

REACTIONS (7)
  - Renal failure [Not Recovered/Not Resolved]
  - Body temperature increased [Not Recovered/Not Resolved]
  - Dry mouth [Not Recovered/Not Resolved]
  - Urine odour abnormal [Not Recovered/Not Resolved]
  - Hypokinesia [Recovering/Resolving]
  - Wrong technique in product usage process [Not Recovered/Not Resolved]
  - Varicose vein [Not Recovered/Not Resolved]

NARRATIVE: CASE EVENT DATE: 202001
